FAERS Safety Report 17073774 (Version 1)
Quarter: 2019Q4

REPORT INFORMATION
  Report Type: Report from Study
  Country: None (occurrence: UY)
  Receive Date: 20191126
  Receipt Date: 20191126
  Transmission Date: 20200122
  Serious: Yes (Hospitalization)
  Sender: FDA-Public Use
  Company Number: UY-ABBVIE-19K-168-3012258-00

PATIENT
  Age: 62 Year
  Sex: Female

DRUGS (1)
  1. HUMIRA [Suspect]
     Active Substance: ADALIMUMAB
     Indication: PSORIATIC ARTHROPATHY
     Route: 058
     Dates: start: 20150601

REACTIONS (1)
  - Inguinal hernia [Recovered/Resolved]

NARRATIVE: CASE EVENT DATE: 20191113
